FAERS Safety Report 4405468-2 (Version None)
Quarter: 2004Q3

REPORT INFORMATION
  Report Type: 
  Country: None (occurrence: None)
  Receive Date: 20040723
  Receipt Date: 20030905
  Transmission Date: 20050211
  Serious: No
  Sender: FDA-Public Use
  Company Number: US-GLAXOSMITHKLINE-A0424873A

PATIENT
  Age: 81 Year
  Sex: Male
  Weight: 77.3 kg

DRUGS (5)
  1. AVANDIA [Suspect]
     Dosage: 4MG SEE DOSAGE TEXT
     Route: 048
  2. WARFARIN SODIUM [Concomitant]
     Indication: ATRIAL FIBRILLATION
     Dosage: 3U PER DAY
     Route: 048
  3. SYNTHROID [Concomitant]
     Indication: THYROIDITIS
     Dosage: 150MG PER DAY
     Route: 048
  4. MULTIVITAMIN [Concomitant]
  5. METOPROLOL [Concomitant]

REACTIONS (3)
  - BLOOD CREATININE INCREASED [None]
  - BLOOD UREA INCREASED [None]
  - POLLAKIURIA [None]
